FAERS Safety Report 6355952-X (Version None)
Quarter: 2009Q3

REPORT INFORMATION
  Report Type: 
  Country: None (occurrence: None)
  Receive Date: 20090915
  Receipt Date: 20090903
  Transmission Date: 20100115
  Serious: No
  Sender: FDA-Public Use
  Company Number: BR-ROCHE-654419

PATIENT
  Sex: Female

DRUGS (3)
  1. ROACUTAN [Suspect]
     Route: 048
  2. ROACUTAN [Suspect]
     Route: 048
     Dates: end: 20090501
  3. ROACUTAN [Suspect]
     Dosage: 1,2CAP/WEEK; DOSAGE REGIMEN
     Route: 048
     Dates: end: 20090715

REACTIONS (2)
  - NO ADVERSE EVENT [None]
  - PREGNANCY [None]
